FAERS Safety Report 17555366 (Version 2)
Quarter: 2020Q1

REPORT INFORMATION
  Report Type: Spontaneous
  Country: CA (occurrence: CA)
  Receive Date: 20200318
  Receipt Date: 20200325
  Transmission Date: 20200409
  Serious: Yes (Hospitalization)
  Sender: FDA-Public Use
  Company Number: CA-VERTEX PHARMACEUTICALS-2020-005670

PATIENT
  Age: 40 Year
  Sex: Male
  Weight: 90 kg

DRUGS (12)
  1. PULMOZYME [Concomitant]
     Active Substance: DORNASE ALFA
  2. INSULIN [Concomitant]
     Active Substance: INSULIN NOS
  3. NORMAL SALINE [Concomitant]
     Active Substance: SODIUM CHLORIDE
  4. VITAMIN K [MENADIONE] [Concomitant]
     Active Substance: MENADIONE
  5. VITAMIN D [COLECALCIFEROL] [Concomitant]
     Active Substance: CHOLECALCIFEROL
  6. VITAMIN E [Concomitant]
     Active Substance: .ALPHA.-TOCOPHEROL
  7. TOBRAMYCIN. [Concomitant]
     Active Substance: TOBRAMYCIN
  8. AZTREONAM. [Concomitant]
     Active Substance: AZTREONAM
  9. SYMDEKO [Suspect]
     Active Substance: IVACAFTOR\TEZACAFTOR
     Indication: CYSTIC FIBROSIS
     Dosage: 1 YELLOW TAB IN MORNING AND 1 BLUE TAB AT NIGHT
     Route: 048
     Dates: start: 201906
  10. VENTOLIN NEBULAS [Concomitant]
     Active Substance: ALBUTEROL SULFATE
  11. ZITHROMAX [Concomitant]
     Active Substance: AZITHROMYCIN DIHYDRATE
  12. RAMIPRIL. [Concomitant]
     Active Substance: RAMIPRIL

REACTIONS (1)
  - Pneumonia [Unknown]

NARRATIVE: CASE EVENT DATE: 20200212
